FAERS Safety Report 5474850-7 (Version None)
Quarter: 2007Q3

REPORT INFORMATION
  Report Type: 
  Country: None (occurrence: None)
  Receive Date: 20070928
  Receipt Date: 20070918
  Transmission Date: 20080115
  Serious: Yes (Other)
  Sender: FDA-Public Use
  Company Number: MYVW-NO-0709S-0079

PATIENT
  Age: 57 Year
  Sex: Male
  Weight: 95 kg

DRUGS (7)
  1. MYOVIEW [Suspect]
     Indication: DRUG USE FOR UNKNOWN INDICATION
     Dosage: 261 MBQ, SINGLE DOSE, I.V.
     Route: 042
     Dates: start: 20070502, end: 20070502
  2. TECHNETIUM 99M GENERATOR (SODIUM PERTECHNETATE  TC99M) [Concomitant]
  3. DIAMICRON (GLICLAZIDE) [Concomitant]
  4. IRBESARTAN [Concomitant]
  5. VASTAREL (TRIMETAZIDINE) [Concomitant]
  6. SIMVASTATIN [Concomitant]
  7. AVANDIA [Concomitant]

REACTIONS (2)
  - DERMATITIS BULLOUS [None]
  - SKIN EXFOLIATION [None]
